FAERS Safety Report 7112354-6 (Version None)
Quarter: 2010Q4

REPORT INFORMATION
  Report Type: 
  Country: None (occurrence: None)
  Receive Date: 20101119
  Receipt Date: 20100826
  Transmission Date: 20110411
  Serious: No
  Sender: FDA-Public Use
  Company Number: A0877889A

PATIENT
  Age: 69 Year
  Sex: Male

DRUGS (3)
  1. AVODART [Suspect]
     Indication: BENIGN PROSTATIC HYPERPLASIA
     Dosage: .5MG IN THE MORNING
     Route: 048
     Dates: start: 20100816
  2. NEXIUM [Concomitant]
  3. MECLIZINE [Concomitant]
     Indication: VERTIGO

REACTIONS (1)
  - BLOOD GLUCOSE DECREASED [None]
